FAERS Safety Report 8341261-6 (Version None)
Quarter: 2012Q2

REPORT INFORMATION
  Report Type: 
  Country: None (occurrence: None)
  Receive Date: 20120507
  Receipt Date: 20120502
  Transmission Date: 20120825
  Serious: No
  Sender: FDA-Public Use
  Company Number: US-TEVA-336462USA

PATIENT
  Sex: Female
  Weight: 68.1 kg

DRUGS (5)
  1. NEURONTIN [Concomitant]
     Indication: CONVULSION
  2. ALBUTEROL [Concomitant]
     Indication: ASTHMA
  3. PLAN B ONE-STEP [Suspect]
     Indication: POST COITAL CONTRACEPTION
     Dosage: 1.5 MILLIGRAM;
     Route: 048
     Dates: start: 20120424, end: 20120424
  4. ATIVAN [Concomitant]
     Indication: CONVULSION
  5. THEOPHYLLINE [Concomitant]
     Indication: ASTHMA

REACTIONS (3)
  - VAGINAL DISCHARGE [None]
  - MENSTRUATION IRREGULAR [None]
  - OFF LABEL USE [None]
